FAERS Safety Report 10923900 (Version 2)
Quarter: 2015Q2

REPORT INFORMATION
  Report Type: Spontaneous
  Country: AR (occurrence: AR)
  Receive Date: 20150318
  Receipt Date: 20150428
  Transmission Date: 20150821
  Serious: Yes (Hospitalization)
  Sender: FDA-Public Use
  Company Number: AR-BIOGENIDEC-2015BI032744

PATIENT
  Age: 20 Year
  Sex: Female

DRUGS (1)
  1. AVONEX [Suspect]
     Active Substance: INTERFERON BETA-1A
     Indication: RELAPSING-REMITTING MULTIPLE SCLEROSIS
     Route: 030

REACTIONS (6)
  - Asthenia [Unknown]
  - Multiple sclerosis relapse [Unknown]
  - Hepatic encephalopathy [Recovered/Resolved]
  - Hypoaesthesia [Unknown]
  - Autoimmune hepatitis [Recovered/Resolved]
  - Hemiparesis [Unknown]
